FAERS Safety Report 4284049-8 (Version None)
Quarter: 2004Q1

REPORT INFORMATION
  Report Type: 
  Country: None (occurrence: None)
  Receive Date: 20040130
  Receipt Date: 20040116
  Transmission Date: 20041129
  Serious: Yes (Other)
  Sender: FDA-Public Use
  Company Number: US-JNJFOC-20040104848

PATIENT
  Age: 14 Year
  Sex: Male
  Weight: 62.1428 kg

DRUGS (2)
  1. CONCERTA [Suspect]
     Indication: ATTENTION DEFICIT/HYPERACTIVITY DISORDER
     Dosage: 54 MG, 1 IN 1 DAY, ORAL
     Route: 048
     Dates: start: 20040115
  2. ZOLOFT [Suspect]
     Dosage: 25 MG

REACTIONS (1)
  - TACHYCARDIA [None]
